FAERS Safety Report 5705176-1 (Version None)
Quarter: 2008Q2

REPORT INFORMATION
  Report Type: 
  Country: None (occurrence: None)
  Receive Date: 20080410
  Receipt Date: 20080328
  Transmission Date: 20081010
  Serious: Yes (Other)
  Sender: FDA-Public Use
  Company Number: 2008008330

PATIENT
  Sex: Female

DRUGS (1)
  1. BENADRYL [Suspect]
     Dosage: UNSPECIFIED, TOPICAL
     Route: 061

REACTIONS (1)
  - HYPERSENSITIVITY [None]
